FAERS Safety Report 25738605 (Version 2)
Quarter: 2025Q3

REPORT INFORMATION
  Report Type: Spontaneous
  Country: US (occurrence: US)
  Receive Date: 20250829
  Receipt Date: 20250830
  Transmission Date: 20251020
  Serious: Yes (Other)
  Sender: IPSEN BIOPHARMACEUTICALS, INC.
  Company Number: US-MLMSERVICE-20250814-PI611499-00394-1

PATIENT
  Age: 61 Year
  Sex: Male

DRUGS (1)
  1. BOTULINUM TOXIN NOS [Suspect]
     Active Substance: BOTULINUM TOXIN NOS
     Indication: Blepharospasm

REACTIONS (1)
  - Myasthenia gravis [Recovering/Resolving]
